FAERS Safety Report 17039677 (Version 7)
Quarter: 2021Q2

REPORT INFORMATION
  Report Type: Report from Study
  Country: None (occurrence: NL)
  Receive Date: 20191116
  Receipt Date: 20210415
  Transmission Date: 20210716
  Serious: Yes (Hospitalization, Other)
  Sender: FDA-Public Use
  Company Number: NL-ABBVIE-17P-114-1920825-00

PATIENT
  Age: 72 Year
  Sex: Male
  Weight: 72 kg

DRUGS (8)
  1. DUODOPA [Suspect]
     Active Substance: CARBIDOPA\LEVODOPA
     Dosage: MD 6.0, CD 2.0, ED 1.0; 16 HOUR ADMINISTRATION
     Route: 050
  2. SIFROL [Concomitant]
     Active Substance: PRAMIPEXOLE
     Indication: PRODUCT USED FOR UNKNOWN INDICATION
  3. SINEMET [Concomitant]
     Active Substance: CARBIDOPA\LEVODOPA
     Indication: PRODUCT USED FOR UNKNOWN INDICATION
  4. DUODOPA [Suspect]
     Active Substance: CARBIDOPA\LEVODOPA
     Dosage: MD 5, CD 2.0 ML, ED 1
     Route: 050
  5. DUODOPA [Suspect]
     Active Substance: CARBIDOPA\LEVODOPA
     Indication: PARKINSON^S DISEASE
     Dosage: MD 5, CD 1.5, ED 1
     Route: 050
     Dates: start: 20161107
  6. DUODOPA [Suspect]
     Active Substance: CARBIDOPA\LEVODOPA
     Dosage: MD: 8.0ML, CD: 3.5ML/H, ED: 3.0ML
     Route: 050
  7. TAMSULOSINE [Concomitant]
     Active Substance: TAMSULOSIN HYDROCHLORIDE
     Indication: URINARY TRACT INFECTION
  8. DUODOPA [Suspect]
     Active Substance: CARBIDOPA\LEVODOPA
     Dosage: MD 8.0 ML; CD 3.5ML/H; ED 3.0ML
     Route: 050

REACTIONS (61)
  - Arthralgia [Not Recovered/Not Resolved]
  - Post procedural complication [Not Recovered/Not Resolved]
  - Stoma site pain [Recovered/Resolved]
  - Stoma site reaction [Not Recovered/Not Resolved]
  - Stoma site irritation [Recovered/Resolved]
  - Device connection issue [Unknown]
  - Depressed mood [Not Recovered/Not Resolved]
  - Speech disorder [Unknown]
  - Mobility decreased [Not Recovered/Not Resolved]
  - Dysphagia [Recovered/Resolved]
  - Delirium [Unknown]
  - Infrequent bowel movements [Recovered/Resolved]
  - Restlessness [Recovered/Resolved]
  - Tremor [Not Recovered/Not Resolved]
  - Memory impairment [Not Recovered/Not Resolved]
  - Eating disorder [Recovered/Resolved]
  - Pain in extremity [Not Recovered/Not Resolved]
  - Sleep disorder [Recovered/Resolved]
  - Cognitive disorder [Unknown]
  - Speech disorder [Not Recovered/Not Resolved]
  - Cognitive disorder [Not Recovered/Not Resolved]
  - Urinary incontinence [Not Recovered/Not Resolved]
  - Confusional state [Not Recovered/Not Resolved]
  - Parkinson^s disease [Recovered/Resolved]
  - Anxiety [Not Recovered/Not Resolved]
  - Parkinson^s disease [Not Recovered/Not Resolved]
  - Dysstasia [Not Recovered/Not Resolved]
  - Femoral hernia [Not Recovered/Not Resolved]
  - Abnormal dreams [Unknown]
  - Fatigue [Not Recovered/Not Resolved]
  - Delusion [Not Recovered/Not Resolved]
  - Stoma site reaction [Recovered/Resolved]
  - Excessive granulation tissue [Unknown]
  - Fibroma [Unknown]
  - Disturbance in attention [Unknown]
  - Asthenia [Not Recovered/Not Resolved]
  - Stoma site haemorrhage [Recovered/Resolved]
  - Stoma site infection [Recovering/Resolving]
  - Device dislocation [Unknown]
  - Chills [Not Recovered/Not Resolved]
  - Freezing phenomenon [Not Recovered/Not Resolved]
  - Fluid intake reduced [Not Recovered/Not Resolved]
  - Abnormal dreams [Recovered/Resolved]
  - Hallucination [Recovered/Resolved]
  - Stoma site discharge [Recovering/Resolving]
  - Therapeutic product effect variable [Recovered/Resolved]
  - Device occlusion [Unknown]
  - Medication error [Not Recovered/Not Resolved]
  - Stress [Not Recovered/Not Resolved]
  - Urinary tract infection [Recovered/Resolved]
  - Bladder disorder [Unknown]
  - Orthostatic hypotension [Recovering/Resolving]
  - On and off phenomenon [Unknown]
  - Fibroma [Not Recovered/Not Resolved]
  - Hypersomnia [Not Recovered/Not Resolved]
  - Gait disturbance [Not Recovered/Not Resolved]
  - Muscle rigidity [Not Recovered/Not Resolved]
  - Stoma site discharge [Recovered/Resolved]
  - Stoma site oedema [Recovered/Resolved]
  - Stoma site erythema [Recovered/Resolved]
  - Therapeutic product effect incomplete [Not Recovered/Not Resolved]

NARRATIVE: CASE EVENT DATE: 20170316
